FAERS Safety Report 8086861-6 (Version None)
Quarter: 2012Q1

REPORT INFORMATION
  Report Type: 
  Country: None (occurrence: None)
  Receive Date: 20120128
  Receipt Date: 20110519
  Transmission Date: 20120608
  Serious: No
  Sender: FDA-Public Use
  Company Number: US-ABBOTT-11P-163-0727087-00

PATIENT
  Age: 66 Year
  Sex: Female

DRUGS (8)
  1. HYDROXYCHLOROQUINE SULFATE [Concomitant]
     Indication: INFLAMMATION
  2. BETA-VAL [Concomitant]
     Indication: PSORIASIS
  3. LEXAPRO [Concomitant]
     Indication: DEPRESSION
  4. LEVOTHYROXINE SODIUM [Concomitant]
     Indication: HYPOTHYROIDISM
  5. HUMIRA [Suspect]
     Indication: RHEUMATOID ARTHRITIS
     Dates: start: 20060501
  6. ASACOL [Concomitant]
     Indication: COLITIS
  7. ALPRAZOLAM [Concomitant]
     Indication: SOMNOLENCE
  8. ALPRAZOLAM [Concomitant]
     Indication: ANXIETY

REACTIONS (4)
  - HEADACHE [None]
  - HAEMORRHAGE [None]
  - PSORIASIS [None]
  - DRUG INEFFECTIVE [None]
